FAERS Safety Report 9189195 (Version 2)
Quarter: 2013Q1

REPORT INFORMATION
  Report Type: Spontaneous
  Country: US (occurrence: None)
  Receive Date: 20130322
  Receipt Date: 20130328
  Transmission Date: 20140127
  Serious: Yes (Hospitalization, Other)
  Sender: FDA-Public Use
  Company Number: AUR-APL-2013-02247

PATIENT
  Age: 65 Year
  Sex: Female

DRUGS (2)
  1. CEFTRIAXONE (CEFTRIAXONE) [Suspect]
     Indication: URINARY TRACT INFECTION
     Dosage: 1 GM (1 GM, 1 IN 24 HR), INTRAVENOUS
     Route: 042
  2. PIPERACILLIN (+) TAZOBACTAM [Suspect]
     Indication: PYREXIA

REACTIONS (3)
  - Purpura [None]
  - Haemodialysis [None]
  - Thrombocytopenia [None]
